FAERS Safety Report 7387984-7 (Version None)
Quarter: 2011Q2

REPORT INFORMATION
  Report Type: 
  Country: None (occurrence: None)
  Receive Date: 20110401
  Receipt Date: 20110316
  Transmission Date: 20111010
  Serious: Yes (Other)
  Sender: FDA-Public Use
  Company Number: US-BIOGENIDEC-2010BI045327

PATIENT
  Age: 22 Year
  Sex: Female

DRUGS (5)
  1. AMITRIPTYLINE [Concomitant]
  2. AVONEX [Suspect]
     Indication: MULTIPLE SCLEROSIS
     Route: 030
     Dates: start: 20100301, end: 20100806
  3. BACLOFEN [Concomitant]
  4. VITAMIN D [Concomitant]
  5. AMANTADINE HCL [Concomitant]

REACTIONS (1)
  - BLIGHTED OVUM [None]
